FAERS Safety Report 9954256 (Version 2)
Quarter: 2014Q1

REPORT INFORMATION
  Report Type: Report from Study
  Country: US (occurrence: US)
  Receive Date: 20140304
  Receipt Date: 20140304
  Transmission Date: 20141002
  Serious: No
  Sender: FDA-Public Use
  Company Number: US-ABBVIE-11P-163-0842930-00

PATIENT
  Sex: Male

DRUGS (4)
  1. HUMIRA 40 MG/0.8 ML PEN [Suspect]
     Indication: PSORIATIC ARTHROPATHY
     Dosage: STARTER PACK
     Dates: start: 20110619, end: 2012
  2. HUMIRA 40 MG/0.8 ML PEN [Suspect]
     Indication: PSORIASIS
  3. MVI [Concomitant]
     Indication: PRODUCT USED FOR UNKNOWN INDICATION
  4. PROBIOTICS [Concomitant]
     Indication: PRODUCT USED FOR UNKNOWN INDICATION

REACTIONS (6)
  - Swelling [Not Recovered/Not Resolved]
  - Tenderness [Not Recovered/Not Resolved]
  - Lymphadenopathy [Recovered/Resolved]
  - Arthralgia [Not Recovered/Not Resolved]
  - Sinusitis [Recovered/Resolved]
  - Arthralgia [Unknown]
